FAERS Safety Report 5428985-5 (Version None)
Quarter: 2007Q3

REPORT INFORMATION
  Report Type: 
  Country: None (occurrence: None)
  Receive Date: 20070829
  Receipt Date: 20070529
  Transmission Date: 20080115
  Serious: No
  Sender: FDA-Public Use
  Company Number: A0653232A

PATIENT
  Age: 48 Year
  Sex: Male

DRUGS (1)
  1. ZOVIRAX [Suspect]
     Indication: GENITAL HERPES
     Route: 048
     Dates: start: 20030101

REACTIONS (1)
  - DRUG INEFFECTIVE [None]
